FAERS Safety Report 5534503-3 (Version None)
Quarter: 2007Q4

REPORT INFORMATION
  Report Type: 
  Country: None (occurrence: None)
  Receive Date: 20071204
  Receipt Date: 20071204
  Transmission Date: 20080405
  Serious: Yes (Life-Threatening, Disabling, Other)
  Sender: FDA-Public Use
  Company Number: None

PATIENT
  Age: 41 Year
  Sex: Female
  Weight: 90.7194 kg

DRUGS (1)
  1. CHANTIX [Suspect]
     Indication: SMOKING CESSATION THERAPY
     Dosage: STARTER PACK
     Dates: start: 20070601, end: 20070701

REACTIONS (11)
  - ABNORMAL DREAMS [None]
  - ANHEDONIA [None]
  - CRYING [None]
  - DEPRESSION [None]
  - DRUG HYPERSENSITIVITY [None]
  - IMPAIRED WORK ABILITY [None]
  - INDIFFERENCE [None]
  - NIGHTMARE [None]
  - ORAL INTAKE REDUCED [None]
  - SUICIDAL IDEATION [None]
  - WEIGHT DECREASED [None]
